FAERS Safety Report 16708575 (Version 1)
Quarter: 2019Q3

REPORT INFORMATION
  Report Type: Spontaneous
  Country: US (occurrence: US)
  Receive Date: 20190816
  Receipt Date: 20190816
  Transmission Date: 20191004
  Serious: No
  Sender: FDA-Public Use
  Company Number: US-MTPC-MTDA2019-0067214

PATIENT

DRUGS (1)
  1. RADICAVA [Suspect]
     Active Substance: EDARAVONE
     Indication: AMYOTROPHIC LATERAL SCLEROSIS
     Dosage: 60 MILLIGRAM, QD FOR 14 CONSECUTIVE DAYS FOLLOWED BY A 2-WEEK DRUG FREE PERIOD
     Route: 042
     Dates: start: 20190807

REACTIONS (1)
  - Poor venous access [Unknown]
